FAERS Safety Report 14415774 (Version 1)
Quarter: 2018Q1

REPORT INFORMATION
  Report Type: Spontaneous
  Country: US (occurrence: US)
  Receive Date: 20180122
  Receipt Date: 20180122
  Transmission Date: 20180509
  Serious: No
  Sender: FDA-Public Use
  Company Number: US-AMGEN-USASP2018007239

PATIENT
  Sex: Female

DRUGS (7)
  1. GOLD [Concomitant]
     Active Substance: GOLD
     Dosage: UNK
  2. PLAQUENIL [Suspect]
     Active Substance: HYDROXYCHLOROQUINE SULFATE
     Indication: FELTY^S SYNDROME
     Dosage: UNK
     Route: 065
     Dates: start: 200712, end: 200803
  3. XELJANZ [Suspect]
     Active Substance: TOFACITINIB CITRATE
     Indication: PRODUCT USED FOR UNKNOWN INDICATION
     Dosage: 5 MG, BID
     Route: 048
  4. SULFASALAZINE. [Concomitant]
     Active Substance: SULFASALAZINE
     Dosage: UNK
  5. XELJANZ XR [Suspect]
     Active Substance: TOFACITINIB CITRATE
     Indication: PRODUCT USED FOR UNKNOWN INDICATION
     Dosage: 11 MG, QD
     Route: 048
  6. ENBREL [Suspect]
     Active Substance: ETANERCEPT
     Indication: FELTY^S SYNDROME
     Dosage: UNK
     Route: 065
     Dates: end: 2008
  7. HUMIRA [Suspect]
     Active Substance: ADALIMUMAB
     Indication: FELTY^S SYNDROME
     Dosage: UNK
     Route: 065
     Dates: end: 2008

REACTIONS (3)
  - Skin reaction [Unknown]
  - Off label use [Unknown]
  - Treatment failure [Unknown]
